FAERS Safety Report 5376391-4 (Version None)
Quarter: 2007Q3

REPORT INFORMATION
  Report Type: 
  Country: None (occurrence: None)
  Receive Date: 20070702
  Receipt Date: 20070621
  Transmission Date: 20080115
  Serious: Yes (Other)
  Sender: FDA-Public Use
  Company Number: AU-PFIZER INC-2007041317

PATIENT
  Age: 74 Year
  Sex: Male

DRUGS (2)
  1. LIPITOR [Suspect]
  2. LAMISIL [Interacting]
     Indication: TRICHOPHYTOSIS

REACTIONS (3)
  - DRUG INTERACTION [None]
  - GLOMERULOSCLEROSIS [None]
  - NEPHROSCLEROSIS [None]
